FAERS Safety Report 4505040-X (Version None)
Quarter: 2004Q4

REPORT INFORMATION
  Report Type: 
  Country: None (occurrence: None)
  Receive Date: 20041015
  Receipt Date: 20040223
  Transmission Date: 20050328
  Serious: Yes (Other)
  Sender: FDA-Public Use
  Company Number: 2003022165

PATIENT
  Age: 54 Year
  Sex: Female
  Weight: 61.2356 kg

DRUGS (11)
  1. NEURONTIN [Suspect]
     Indication: TRIGEMINAL NEURALGIA
     Dosage: 200 MG DAILY
     Dates: start: 20020927, end: 20030418
  2. TOPIRAMATE [Suspect]
     Indication: TRIGEMINAL NEURALGIA
     Dates: start: 20030418, end: 20030101
  3. NORTRIPTYLINE HCL [Suspect]
     Indication: TRIGEMINAL NEURALGIA
  4. OXCARBAZEPINE (OXCARBAZEPINE) [Suspect]
     Indication: TRIGEMINAL NEURALGIA
  5. TIAGABINE HYDROCHLORIDE (TIAGABINE HYDROCHLORIDE) [Suspect]
     Indication: TRIGEMINAL NEURALGIA
  6. CARBAMAZEPINE [Suspect]
     Indication: TRIGEMINAL NEURALGIA
     Dates: end: 20030321
  7. ASCORBIC ACID [Concomitant]
  8. TOCOPHEROL CONCENTRATE CAP [Concomitant]
  9. MULTIVITAMIN ^LAPPE^ (VITAMINS NOS) [Concomitant]
  10. GLUCOSAMINE W/CHONDROITIN SULFATES (ASCORBIC ACID MANGANESE, CHONDROIT [Concomitant]
  11. ALL OTHER THERAPEUTIC PRODUCTS [Concomitant]

REACTIONS (17)
  - ABDOMINAL PAIN UPPER [None]
  - BLOOD PRESSURE DECREASED [None]
  - CHEST PAIN [None]
  - DYSSTASIA [None]
  - EAR DISORDER [None]
  - EUPHORIC MOOD [None]
  - FATIGUE [None]
  - FEELING ABNORMAL [None]
  - HEPATIC ENZYME INCREASED [None]
  - HEPATITIS [None]
  - HEPATOMEGALY [None]
  - INFECTIOUS MONONUCLEOSIS [None]
  - LOGORRHOEA [None]
  - SLEEP DISORDER [None]
  - SYNCOPE [None]
  - TRIGEMINAL NEURALGIA [None]
  - VERTIGO [None]
